FAERS Safety Report 11401950 (Version 1)
Quarter: 2015Q3

REPORT INFORMATION
  Report Type: Spontaneous
  Country: US (occurrence: US)
  Receive Date: 20150821
  Receipt Date: 20150821
  Transmission Date: 20151125
  Serious: No
  Sender: FDA-Public Use
  Company Number: US-ROCHE-1372629

PATIENT
  Sex: Female
  Weight: 59.02 kg

DRUGS (3)
  1. RIBASPHERE RIBAPAK [Suspect]
     Active Substance: RIBAVIRIN
     Indication: CHRONIC HEPATITIS C
     Dosage: DIVIDED DOSES 400/400
     Route: 048
     Dates: start: 20140318
  2. SOVALDI [Suspect]
     Active Substance: SOFOSBUVIR
     Indication: CHRONIC HEPATITIS C
     Route: 048
     Dates: start: 20140318
  3. PEGASYS [Suspect]
     Active Substance: PEGINTERFERON ALFA-2A
     Indication: CHRONIC HEPATITIS C
     Route: 058
     Dates: start: 20140318

REACTIONS (8)
  - Anxiety [Unknown]
  - Decreased appetite [Unknown]
  - Weight decreased [Unknown]
  - Blood bilirubin increased [Unknown]
  - Incorrect dose administered [Unknown]
  - Insomnia [Unknown]
  - Jaundice [Unknown]
  - Ocular icterus [Unknown]
